FAERS Safety Report 11492945 (Version 1)
Quarter: 2015Q3

REPORT INFORMATION
  Report Type: Spontaneous
  Country: US (occurrence: None)
  Receive Date: 20150910
  Receipt Date: 20150910
  Transmission Date: 20151125
  Serious: Yes (Hospitalization)
  Sender: FDA-Public Use
  Company Number: None

PATIENT

DRUGS (8)
  1. SYNTHROID [Suspect]
     Active Substance: LEVOTHYROXINE SODIUM
     Indication: HYPOTHYROIDISM
     Dosage: 25 UG/50 UG DAILY PO
     Route: 048
  2. CHOLECALCIFEROL [Concomitant]
     Active Substance: CHOLECALCIFEROL
  3. OXYCODONE-ACETAMINOPHEN (PERCOCET) [Concomitant]
  4. DEXLANSOPRAZOLE (DEXILANT) [Concomitant]
  5. MOTRIN [Concomitant]
     Active Substance: IBUPROFEN
  6. LISINOPRIL (PRINIVIL) [Concomitant]
  7. DIAZEPAM (VALIUM) [Concomitant]
  8. LORATADINE (CLARITIN) [Concomitant]

REACTIONS (2)
  - Chest pain [None]
  - Product substitution issue [None]
